FAERS Safety Report 12737535 (Version 2)
Quarter: 2016Q4

REPORT INFORMATION
  Report Type: Spontaneous
  Country: CA (occurrence: CA)
  Receive Date: 20160913
  Receipt Date: 20161109
  Transmission Date: 20170207
  Serious: Yes (Other)
  Sender: FDA-Public Use
  Company Number: CA-PFIZER INC-2016416482

PATIENT
  Sex: Male

DRUGS (1)
  1. SUNITINIB MALATE. [Suspect]
     Active Substance: SUNITINIB MALATE
     Indication: RENAL CANCER METASTATIC
     Dosage: 37.5 MG, CYCLIC (2 WEEKS ON/1 OFF)
     Route: 048
     Dates: start: 20160728, end: 20160818

REACTIONS (3)
  - Scrotal inflammation [Recovered/Resolved]
  - Exfoliative rash [Unknown]
  - Hand-foot-genital syndrome [Recovered/Resolved]

NARRATIVE: CASE EVENT DATE: 201607
